FAERS Safety Report 7968147-0 (Version None)
Quarter: 2011Q4

REPORT INFORMATION
  Report Type: 
  Country: None (occurrence: None)
  Receive Date: 20111209
  Receipt Date: 20111130
  Transmission Date: 20120403
  Serious: Yes (Hospitalization)
  Sender: FDA-Public Use
  Company Number: PHHY2011JP105395

PATIENT
  Age: 38 Year
  Sex: Male

DRUGS (2)
  1. CYCLOSPORINE [Suspect]
     Indication: ALLOGENIC BONE MARROW TRANSPLANTATION THERAPY
     Dosage: UNK UKN, UNK
  2. METHOTREXATE [Concomitant]
     Dosage: UNK UKN, UNK

REACTIONS (2)
  - PERICARDITIS [None]
  - PNEUMONIA PNEUMOCOCCAL [None]
